FAERS Safety Report 16301646 (Version 3)
Quarter: 2019Q2

REPORT INFORMATION
  Report Type: Report from Study
  Country: CA (occurrence: CA)
  Receive Date: 20190511
  Receipt Date: 20190615
  Transmission Date: 20190711
  Serious: Yes (Life-Threatening, Other)
  Sender: FDA-Public Use
  Company Number: CA-AMGEN-CANSP2019075551

PATIENT
  Age: 36 Year
  Sex: Female

DRUGS (4)
  1. AIMOVIG [Suspect]
     Active Substance: ERENUMAB-AOOE
     Indication: MIGRAINE
     Dosage: 70 MILLIGRAM, QMO
     Route: 058
     Dates: start: 20190313
  2. IMITREX [Concomitant]
     Active Substance: SUMATRIPTAN SUCCINATE
     Indication: PRODUCT USED FOR UNKNOWN INDICATION
     Dosage: UNK UNK, PRN
     Route: 065
  3. AIMOVIG [Suspect]
     Active Substance: ERENUMAB-AOOE
     Dosage: 70 MILLIGRAM, QMO
     Route: 058
     Dates: start: 20190413
  4. BOTOX [Concomitant]
     Active Substance: ONABOTULINUMTOXINA
     Indication: PRODUCT USED FOR UNKNOWN INDICATION
     Dosage: FOR 3 MONTHS
     Route: 065

REACTIONS (34)
  - Anaphylactic reaction [Not Recovered/Not Resolved]
  - Bronchospasm [Unknown]
  - Erythema [Unknown]
  - Eye swelling [Unknown]
  - Laryngospasm [Unknown]
  - Lip swelling [Unknown]
  - Skin oedema [Unknown]
  - Type I hypersensitivity [Unknown]
  - Abdominal pain [Unknown]
  - Face oedema [Unknown]
  - Vomiting [Unknown]
  - Angioedema [Not Recovered/Not Resolved]
  - Urticaria [Not Recovered/Not Resolved]
  - Eye oedema [Unknown]
  - Pruritus [Unknown]
  - Oedema peripheral [Unknown]
  - Lip oedema [Unknown]
  - Wheezing [Unknown]
  - Diarrhoea [Unknown]
  - Dysphagia [Unknown]
  - Swelling face [Unknown]
  - Peripheral swelling [Unknown]
  - Oropharyngeal swelling [Unknown]
  - Chest discomfort [Unknown]
  - Flushing [Unknown]
  - Rash [Unknown]
  - Pharyngeal swelling [Unknown]
  - Asthma [Unknown]
  - Respiratory distress [Unknown]
  - Skin swelling [Unknown]
  - Stridor [Unknown]
  - Pharyngeal oedema [Unknown]
  - Respiratory failure [Unknown]
  - Dyspnoea [Unknown]

NARRATIVE: CASE EVENT DATE: 20190315
